FAERS Safety Report 6359022-6 (Version None)
Quarter: 2009Q3

REPORT INFORMATION
  Report Type: 
  Country: None (occurrence: None)
  Receive Date: 20090917
  Receipt Date: 20070920
  Transmission Date: 20100115
  Serious: Yes (Hospitalization, Other)
  Sender: FDA-Public Use
  Company Number: US-ASTRAZENECA-2006UW21963

PATIENT
  Age: 578 Month
  Sex: Male
  Weight: 112.5 kg

DRUGS (17)
  1. SEROQUEL [Suspect]
     Indication: SLEEP DISORDER
     Dosage: 300 MG 2X DAILY
     Route: 048
     Dates: start: 20000101, end: 20070101
  2. SEROQUEL [Suspect]
     Dosage: 200 MG-300 MG TABLET DISPENSED
     Route: 048
     Dates: start: 20020402
  3. RISPERIDONE [Concomitant]
  4. PREVACID [Concomitant]
     Dosage: 30 MG TABLET DISPENSED
     Dates: start: 20050805
  5. ACTOS [Concomitant]
     Dosage: 30 MG TABLET DISPENSED
     Dates: start: 20050504
  6. TRICOR [Concomitant]
     Dosage: 145 MG DISPENSED
     Dates: start: 20050301
  7. LOTREL [Concomitant]
     Dosage: 5-20 MG CAPSULE DISPENSED
     Dates: start: 20051118
  8. FUROSEMIDE [Concomitant]
     Dosage: 40 MG TABLET DISPENSED
     Dates: start: 20050708
  9. PAXIL [Concomitant]
     Dosage: 20 MG TO 30 MG
     Dates: start: 20010625
  10. PROZAC [Concomitant]
  11. CELEXA [Concomitant]
     Dosage: 20 MG -40 MG
     Dates: start: 20000118
  12. RESTORIL [Concomitant]
  13. TRAZODONE [Concomitant]
  14. SONATA [Concomitant]
     Dosage: 10 MG TABLET DISPENSED
     Dates: start: 20000413
  15. MOTRIN [Concomitant]
     Dates: start: 20040319
  16. LISINOPRIL [Concomitant]
     Dates: start: 20040319
  17. ASPIRIN [Concomitant]
     Dates: start: 20040319

REACTIONS (7)
  - APPENDICITIS [None]
  - ASTHENIA [None]
  - CEREBROVASCULAR ACCIDENT [None]
  - DIABETES MELLITUS [None]
  - DIABETIC RETINOPATHY [None]
  - NEUROPATHY PERIPHERAL [None]
  - TYPE 2 DIABETES MELLITUS [None]
